FAERS Safety Report 6333418-0 (Version None)
Quarter: 2009Q3

REPORT INFORMATION
  Report Type: 
  Country: None (occurrence: None)
  Receive Date: 20090828
  Receipt Date: 20090817
  Transmission Date: 20100115
  Serious: Yes (Hospitalization)
  Sender: FDA-Public Use
  Company Number: US-ELI_LILLY_AND_COMPANY-US200906006607

PATIENT
  Sex: Female

DRUGS (7)
  1. CYMBALTA [Suspect]
     Indication: MAJOR DEPRESSION
     Dosage: 30 MG, DAILY (1/D)
     Dates: start: 20050101, end: 20090605
  2. FOSAMAX [Concomitant]
  3. PROTONIX [Concomitant]
  4. SYNTHROID [Concomitant]
  5. ENJUVIA [Concomitant]
  6. NEURONTIN [Concomitant]
  7. DICLOFENAC [Concomitant]

REACTIONS (4)
  - CHEST PAIN [None]
  - DIAPHRAGMATIC DISORDER [None]
  - FLUID RETENTION [None]
  - HYPONATRAEMIA [None]
